FAERS Safety Report 25703164 (Version 1)
Quarter: 2025Q3

REPORT INFORMATION
  Report Type: Report from Study
  Country: US (occurrence: US)
  Receive Date: 20250820
  Receipt Date: 20250820
  Transmission Date: 20251020
  Serious: Yes (Hospitalization, Other)
  Sender: ABBVIE
  Company Number: US-ABBVIE-6418258

PATIENT
  Age: 12 Year
  Sex: Female

DRUGS (1)
  1. RINVOQ [Suspect]
     Active Substance: UPADACITINIB
     Indication: Colitis ulcerative
     Route: 048
     Dates: start: 20250811

REACTIONS (3)
  - Hospitalisation [Not Recovered/Not Resolved]
  - Off label use [Unknown]
  - Myelin oligodendrocyte glycoprotein antibody-associated disease [Unknown]

NARRATIVE: CASE EVENT DATE: 20250801
